FAERS Safety Report 16988971 (Version 1)
Quarter: 2019Q4

REPORT INFORMATION
  Report Type: Spontaneous
  Country: US (occurrence: US)
  Receive Date: 20191104
  Receipt Date: 20191104
  Transmission Date: 20200122
  Serious: No
  Sender: FDA-Public Use
  Company Number: US-MYLANLABS-2019M1100299

PATIENT
  Sex: Female
  Weight: 83 kg

DRUGS (1)
  1. ESTRADIOL TRANSDERMAL SYSTEM [Suspect]
     Active Substance: ESTRADIOL
     Indication: HORMONE REPLACEMENT THERAPY
     Dosage: UNK UNK, Q2W
     Route: 062

REACTIONS (6)
  - Application site scab [Recovered/Resolved]
  - Application site laceration [Recovered/Resolved]
  - Product residue present [Recovered/Resolved]
  - Application site haemorrhage [Recovered/Resolved]
  - Application site erythema [Not Recovered/Not Resolved]
  - Product adhesion issue [Recovering/Resolving]

NARRATIVE: CASE EVENT DATE: 2019
